FAERS Safety Report 10611708 (Version 2)
Quarter: 2014Q4

REPORT INFORMATION
  Report Type: Report from Study
  Country: US (occurrence: US)
  Receive Date: 20141126
  Receipt Date: 20141126
  Transmission Date: 20150529
  Serious: Yes (Hospitalization, Other)
  Sender: FDA-Public Use
  Company Number: US-ABBVIE-14K-163-1294497-00

PATIENT
  Age: 45 Year
  Sex: Male

DRUGS (7)
  1. FOLIC ACID. [Concomitant]
     Active Substance: FOLIC ACID
     Indication: PRODUCT USED FOR UNKNOWN INDICATION
  2. HUMIRA [Suspect]
     Active Substance: ADALIMUMAB
     Dosage: DAY 15
     Route: 065
     Dates: start: 20140624, end: 20140624
  3. HUMIRA [Suspect]
     Active Substance: ADALIMUMAB
     Route: 065
     Dates: start: 20141117
  4. VITAMIN B6 [Concomitant]
     Active Substance: PYRIDOXINE HYDROCHLORIDE
     Indication: PRODUCT USED FOR UNKNOWN INDICATION
  5. VITAMIN B12 [Concomitant]
     Active Substance: CYANOCOBALAMIN
     Indication: VITAMIN B12 DECREASED
     Route: 050
     Dates: start: 201411
  6. HUMIRA [Suspect]
     Active Substance: ADALIMUMAB
     Route: 065
     Dates: start: 20140708, end: 20141028
  7. HUMIRA [Suspect]
     Active Substance: ADALIMUMAB
     Indication: CROHN^S DISEASE
     Dosage: DAY 1
     Route: 065
     Dates: start: 20140610, end: 20140610

REACTIONS (17)
  - Anxiety [Not Recovered/Not Resolved]
  - Vitamin B12 decreased [Unknown]
  - Productive cough [Not Recovered/Not Resolved]
  - Abdominal distension [Not Recovered/Not Resolved]
  - Viral infection [Not Recovered/Not Resolved]
  - Drug ineffective [Not Recovered/Not Resolved]
  - Hypoaesthesia [Recovered/Resolved]
  - Cerebrovascular accident [Recovered/Resolved]
  - Diarrhoea [Not Recovered/Not Resolved]
  - Drug effect decreased [Not Recovered/Not Resolved]
  - Insomnia [Not Recovered/Not Resolved]
  - Hypercoagulation [Unknown]
  - Nasopharyngitis [Not Recovered/Not Resolved]
  - Flatulence [Not Recovered/Not Resolved]
  - Vision blurred [Not Recovered/Not Resolved]
  - Dizziness [Not Recovered/Not Resolved]
  - Sinus congestion [Not Recovered/Not Resolved]

NARRATIVE: CASE EVENT DATE: 2014
